FAERS Safety Report 10509970 (Version 1)
Quarter: 2014Q4

REPORT INFORMATION
  Report Type: Spontaneous
  Country: US (occurrence: None)
  Receive Date: 20141009
  Receipt Date: 20141009
  Transmission Date: 20150528
  Serious: Yes (Death)
  Sender: FDA-Public Use
  Company Number: None

PATIENT
  Age: 74 Year
  Sex: Male
  Weight: 93.6 kg

DRUGS (2)
  1. DAUNORUBICIN [Suspect]
     Active Substance: DAUNORUBICIN
     Dates: end: 20140928
  2. CYTARABINE. [Suspect]
     Active Substance: CYTARABINE
     Dates: end: 20141004

REACTIONS (4)
  - Hypotension [None]
  - Respiratory failure [None]
  - Blood culture positive [None]
  - Atrial flutter [None]

NARRATIVE: CASE EVENT DATE: 20141004
